FAERS Safety Report 23953543 (Version 1)
Quarter: 2024Q2

REPORT INFORMATION
  Report Type: Spontaneous
  Country: GR (occurrence: GR)
  Receive Date: 20240608
  Receipt Date: 20240608
  Transmission Date: 20240715
  Serious: Yes (Other)
  Sender: FDA-Public Use
  Company Number: GR-AMGEN-GRCSP2024111095

PATIENT
  Age: 65 Year
  Sex: Female

DRUGS (3)
  1. CINACALCET HYDROCHLORIDE [Suspect]
     Active Substance: CINACALCET HYDROCHLORIDE
     Indication: Hyperparathyroidism primary
     Dosage: (MAXIMUM DOSE OF  360MG/DAY)
     Route: 065
  2. CINACALCET HYDROCHLORIDE [Suspect]
     Active Substance: CINACALCET HYDROCHLORIDE
     Indication: Hypercalcaemia
     Dosage: (MAXIMUM DOSE OF  360MG/DAY) (RESUMPTION)
     Route: 065
  3. MAGNESIUM [Concomitant]
     Active Substance: MAGNESIUM
     Indication: Hypercalcaemia
     Dosage: UNK
     Route: 065

REACTIONS (11)
  - Nephrolithiasis [Unknown]
  - Parathyroid tumour benign [Unknown]
  - Osteopenia [Unknown]
  - Therapeutic product effect decreased [Unknown]
  - Hypercalcaemia [Unknown]
  - Nausea [Unknown]
  - Dizziness [Unknown]
  - Asthenia [Unknown]
  - Hyperparathyroidism [Unknown]
  - Hypomagnesaemia [Unknown]
  - Hypophosphataemia [Unknown]
